FAERS Safety Report 20487024 (Version 1)
Quarter: 2022Q1

REPORT INFORMATION
  Report Type: Spontaneous
  Country: US (occurrence: US)
  Receive Date: 20220217
  Receipt Date: 20220217
  Transmission Date: 20220423
  Serious: Yes (Other)
  Sender: FDA-Public Use
  Company Number: US-drreddys-LIT/USA/22/0146825

PATIENT
  Age: 70 Year
  Sex: Female

DRUGS (4)
  1. CETIRIZINE [Suspect]
     Active Substance: CETIRIZINE HYDROCHLORIDE
     Indication: Pruritus
     Route: 048
  2. HYDROXYZINE HYDROCHLORIDE [Suspect]
     Active Substance: HYDROXYZINE HYDROCHLORIDE
     Indication: Pruritus
     Route: 048
  3. CLOBETASOL [Suspect]
     Active Substance: CLOBETASOL
     Indication: Psoriasis
     Dosage: UNDER OCCLUSION WITH A COTTON GLOVE
  4. CAMPHOR AND MENTHOL [Suspect]
     Active Substance: CAMPHOR (SYNTHETIC)\MENTHOL
     Indication: Pruritus

REACTIONS (1)
  - Drug ineffective [Unknown]
